FAERS Safety Report 13609366 (Version 1)
Quarter: 2017Q2

REPORT INFORMATION
  Report Type: Spontaneous
  Country: BR (occurrence: BR)
  Receive Date: 20170602
  Receipt Date: 20170602
  Transmission Date: 20170830
  Serious: Yes (Other)
  Sender: FDA-Public Use
  Company Number: BR-ALLERGAN-1722737US

PATIENT
  Age: 40 Year
  Sex: Male

DRUGS (1)
  1. CEFTAROLINE FOSAMIL - BP [Suspect]
     Active Substance: CEFTAROLINE FOSAMIL
     Indication: CELLULITIS
     Dosage: UNK UNK, SINGLE
     Route: 042

REACTIONS (2)
  - Leukopenia [Recovered/Resolved]
  - Toxicity to various agents [Recovered/Resolved]
